FAERS Safety Report 12403212 (Version 2)
Quarter: 2016Q3

REPORT INFORMATION
  Report Type: Spontaneous
  Country: FR (occurrence: FR)
  Receive Date: 20160525
  Receipt Date: 20160705
  Transmission Date: 20161109
  Serious: Yes (Hospitalization, Other)
  Sender: FDA-Public Use
  Company Number: FR-ELI_LILLY_AND_COMPANY-FR201605004661

PATIENT
  Age: 73 Year
  Sex: Female

DRUGS (13)
  1. ALPRAZOLAM MERCK [Suspect]
     Active Substance: ALPRAZOLAM
     Indication: ANXIETY
     Dosage: 1 DF THREE TIMES DAILY
     Route: 048
     Dates: start: 20160402
  2. INNOHEP [Concomitant]
     Active Substance: TINZAPARIN SODIUM
  3. LACRIFLUID [Concomitant]
     Active Substance: CARBOMER
  4. ZELITREX [Suspect]
     Active Substance: VALACYCLOVIR HYDROCHLORIDE
     Dosage: 1 G, BID
     Route: 048
     Dates: start: 20160408, end: 20160408
  5. DOLIPRANE [Concomitant]
     Active Substance: ACETAMINOPHEN
  6. NORDAZ [Concomitant]
     Active Substance: NORDAZEPAM
  7. ATARAX [Suspect]
     Active Substance: HYDROXYZINE\HYDROXYZINE HYDROCHLORIDE
     Indication: ANXIETY
     Dosage: 1 DF, QD
     Route: 048
  8. CYMBALTA [Suspect]
     Active Substance: DULOXETINE HYDROCHLORIDE
     Indication: ANXIETY
     Dosage: 30 MG, DAILY
     Route: 048
  9. ATARAX [Suspect]
     Active Substance: HYDROXYZINE\HYDROXYZINE HYDROCHLORIDE
     Dosage: 1 DF THREE TIMES A DAY
     Route: 048
     Dates: end: 20160405
  10. PYOSTACINE [Concomitant]
     Active Substance: PRISTINAMYCIN
  11. OXYCONTIN [Suspect]
     Active Substance: OXYCODONE HYDROCHLORIDE
     Indication: PAIN
     Dosage: 30 MG, TWICE DAILY
     Route: 048
  12. ZELITREX [Suspect]
     Active Substance: VALACYCLOVIR HYDROCHLORIDE
     Indication: HERPES ZOSTER
     Dosage: 2 DF THREE TIMES DAILY
     Route: 048
     Dates: start: 20160401, end: 20160407
  13. TAMOXIFENE [Concomitant]
     Active Substance: TAMOXIFEN

REACTIONS (3)
  - Herpes zoster [Unknown]
  - Hallucination [Recovered/Resolved]
  - Confusional state [Recovered/Resolved]

NARRATIVE: CASE EVENT DATE: 20160401
